FAERS Safety Report 9187857 (Version 1)
Quarter: 2013Q1

REPORT INFORMATION
  Report Type: Spontaneous
  Country: US (occurrence: US)
  Receive Date: 20130325
  Receipt Date: 20130325
  Transmission Date: 20140127
  Serious: No
  Sender: FDA-Public Use
  Company Number: US-MYLANLABS-2012S1012988

PATIENT
  Age: 37 Year
  Sex: Male
  Weight: 63.01 kg

DRUGS (2)
  1. FENTANYL TRANSDERMAL SYSTEM [Suspect]
     Indication: NEURALGIA
     Dosage: CHANGED Q48H
     Route: 062
     Dates: start: 201202, end: 20120528
  2. FENTANYL TRANSDERMAL SYSTEM [Suspect]
     Indication: NEURALGIA
     Dosage: CHANGED Q48H
     Route: 062
     Dates: start: 20120529

REACTIONS (2)
  - Nausea [Not Recovered/Not Resolved]
  - Withdrawal syndrome [Recovered/Resolved]
